FAERS Safety Report 7573952-9 (Version None)
Quarter: 2011Q2

REPORT INFORMATION
  Report Type: 
  Country: None (occurrence: None)
  Receive Date: 20110627
  Receipt Date: 20110614
  Transmission Date: 20111010
  Serious: Yes (Death, Hospitalization)
  Sender: FDA-Public Use
  Company Number: FR-ASTRAZENECA-2011SE36367

PATIENT
  Sex: Female

DRUGS (2)
  1. IRESSA [Suspect]
     Route: 048
     Dates: start: 20110608
  2. IRESSA [Suspect]
     Indication: LUNG NEOPLASM MALIGNANT
     Route: 048
     Dates: start: 20110506, end: 20110529

REACTIONS (5)
  - THROMBOCYTOPENIA [None]
  - DIVERTICULAR PERFORATION [None]
  - LEUKOPENIA [None]
  - SURGERY [None]
  - GENERAL PHYSICAL CONDITION ABNORMAL [None]
